FAERS Safety Report 20775820 (Version 1)
Quarter: 2022Q2

REPORT INFORMATION
  Report Type: Report from Study
  Country: DE (occurrence: DE)
  Receive Date: 20220502
  Receipt Date: 20220502
  Transmission Date: 20220721
  Serious: Yes (Hospitalization, Other)
  Sender: FDA-Public Use
  Company Number: None

PATIENT
  Age: 82 Year
  Sex: Female

DRUGS (201)
  1. TEDUGLUTIDE [Suspect]
     Active Substance: TEDUGLUTIDE
     Indication: Short-bowel syndrome
     Dosage: 2.8 MILLIGRAM, QD
     Route: 042
     Dates: start: 20161206, end: 20161209
  2. TEDUGLUTIDE [Suspect]
     Active Substance: TEDUGLUTIDE
     Indication: Short-bowel syndrome
     Dosage: 2.8 MILLIGRAM, QD
     Route: 042
     Dates: start: 20161206, end: 20161209
  3. TEDUGLUTIDE [Suspect]
     Active Substance: TEDUGLUTIDE
     Indication: Short-bowel syndrome
     Dosage: 2.8 MILLIGRAM, QD
     Route: 042
     Dates: start: 20161206, end: 20161209
  4. TEDUGLUTIDE [Suspect]
     Active Substance: TEDUGLUTIDE
     Indication: Short-bowel syndrome
     Dosage: 2.8 MILLIGRAM, QD
     Route: 042
     Dates: start: 20161206, end: 20161209
  5. TEDUGLUTIDE [Suspect]
     Active Substance: TEDUGLUTIDE
     Dosage: 1.400 MILLIGRAM, 4/WEEK
     Route: 042
     Dates: start: 20161214, end: 20161220
  6. TEDUGLUTIDE [Suspect]
     Active Substance: TEDUGLUTIDE
     Dosage: 1.400 MILLIGRAM, 4/WEEK
     Route: 042
     Dates: start: 20161214, end: 20161220
  7. TEDUGLUTIDE [Suspect]
     Active Substance: TEDUGLUTIDE
     Dosage: 1.400 MILLIGRAM, 4/WEEK
     Route: 042
     Dates: start: 20161214, end: 20161220
  8. TEDUGLUTIDE [Suspect]
     Active Substance: TEDUGLUTIDE
     Dosage: 1.400 MILLIGRAM, 4/WEEK
     Route: 042
     Dates: start: 20161214, end: 20161220
  9. TEDUGLUTIDE [Suspect]
     Active Substance: TEDUGLUTIDE
     Dosage: 1.400 MILLIGRAM, 3/WEEK
     Route: 042
     Dates: start: 20161221, end: 20161227
  10. TEDUGLUTIDE [Suspect]
     Active Substance: TEDUGLUTIDE
     Dosage: 1.400 MILLIGRAM, 3/WEEK
     Route: 042
     Dates: start: 20161221, end: 20161227
  11. TEDUGLUTIDE [Suspect]
     Active Substance: TEDUGLUTIDE
     Dosage: 1.400 MILLIGRAM, 3/WEEK
     Route: 042
     Dates: start: 20161221, end: 20161227
  12. TEDUGLUTIDE [Suspect]
     Active Substance: TEDUGLUTIDE
     Dosage: 1.400 MILLIGRAM, 3/WEEK
     Route: 042
     Dates: start: 20161221, end: 20161227
  13. TEDUGLUTIDE [Suspect]
     Active Substance: TEDUGLUTIDE
     Dosage: 1.400 MILLIGRAM, 4/WEEK
     Route: 042
     Dates: start: 20161228, end: 20170103
  14. TEDUGLUTIDE [Suspect]
     Active Substance: TEDUGLUTIDE
     Dosage: 1.400 MILLIGRAM, 4/WEEK
     Route: 042
     Dates: start: 20161228, end: 20170103
  15. TEDUGLUTIDE [Suspect]
     Active Substance: TEDUGLUTIDE
     Dosage: 1.400 MILLIGRAM, 4/WEEK
     Route: 042
     Dates: start: 20161228, end: 20170103
  16. TEDUGLUTIDE [Suspect]
     Active Substance: TEDUGLUTIDE
     Dosage: 1.400 MILLIGRAM, 4/WEEK
     Route: 042
     Dates: start: 20161228, end: 20170103
  17. TEDUGLUTIDE [Suspect]
     Active Substance: TEDUGLUTIDE
     Dosage: 1.400 MILLIGRAM, 3/WEEK
     Route: 042
     Dates: start: 20170104, end: 20170110
  18. TEDUGLUTIDE [Suspect]
     Active Substance: TEDUGLUTIDE
     Dosage: 1.400 MILLIGRAM, 3/WEEK
     Route: 042
     Dates: start: 20170104, end: 20170110
  19. TEDUGLUTIDE [Suspect]
     Active Substance: TEDUGLUTIDE
     Dosage: 1.400 MILLIGRAM, 3/WEEK
     Route: 042
     Dates: start: 20170104, end: 20170110
  20. TEDUGLUTIDE [Suspect]
     Active Substance: TEDUGLUTIDE
     Dosage: 1.400 MILLIGRAM, 3/WEEK
     Route: 042
     Dates: start: 20170104, end: 20170110
  21. TEDUGLUTIDE [Suspect]
     Active Substance: TEDUGLUTIDE
     Dosage: 1.400 MILLIGRAM, 4/WEEK
     Route: 042
     Dates: start: 20170111, end: 20170117
  22. TEDUGLUTIDE [Suspect]
     Active Substance: TEDUGLUTIDE
     Dosage: 1.400 MILLIGRAM, 4/WEEK
     Route: 042
     Dates: start: 20170111, end: 20170117
  23. TEDUGLUTIDE [Suspect]
     Active Substance: TEDUGLUTIDE
     Dosage: 1.400 MILLIGRAM, 4/WEEK
     Route: 042
     Dates: start: 20170111, end: 20170117
  24. TEDUGLUTIDE [Suspect]
     Active Substance: TEDUGLUTIDE
     Dosage: 1.400 MILLIGRAM, 4/WEEK
     Route: 042
     Dates: start: 20170111, end: 20170117
  25. TEDUGLUTIDE [Suspect]
     Active Substance: TEDUGLUTIDE
     Dosage: 1.4 MILLIGRAM, 3/WEEK
     Route: 042
     Dates: start: 20170118, end: 20170124
  26. TEDUGLUTIDE [Suspect]
     Active Substance: TEDUGLUTIDE
     Dosage: 1.4 MILLIGRAM, 3/WEEK
     Route: 042
     Dates: start: 20170118, end: 20170124
  27. TEDUGLUTIDE [Suspect]
     Active Substance: TEDUGLUTIDE
     Dosage: 1.4 MILLIGRAM, 3/WEEK
     Route: 042
     Dates: start: 20170118, end: 20170124
  28. TEDUGLUTIDE [Suspect]
     Active Substance: TEDUGLUTIDE
     Dosage: 1.4 MILLIGRAM, 3/WEEK
     Route: 042
     Dates: start: 20170118, end: 20170124
  29. TEDUGLUTIDE [Suspect]
     Active Substance: TEDUGLUTIDE
     Dosage: 1.4 MILLIGRAM, 4/WEEK
     Route: 042
     Dates: start: 20170125, end: 20170131
  30. TEDUGLUTIDE [Suspect]
     Active Substance: TEDUGLUTIDE
     Dosage: 1.4 MILLIGRAM, 4/WEEK
     Route: 042
     Dates: start: 20170125, end: 20170131
  31. TEDUGLUTIDE [Suspect]
     Active Substance: TEDUGLUTIDE
     Dosage: 1.4 MILLIGRAM, 4/WEEK
     Route: 042
     Dates: start: 20170125, end: 20170131
  32. TEDUGLUTIDE [Suspect]
     Active Substance: TEDUGLUTIDE
     Dosage: 1.4 MILLIGRAM, 4/WEEK
     Route: 042
     Dates: start: 20170125, end: 20170131
  33. TEDUGLUTIDE [Suspect]
     Active Substance: TEDUGLUTIDE
     Dosage: 1.4 MILLIGRAM, 3/WEEK
     Route: 042
     Dates: start: 20170201, end: 20170207
  34. TEDUGLUTIDE [Suspect]
     Active Substance: TEDUGLUTIDE
     Dosage: 1.4 MILLIGRAM, 3/WEEK
     Route: 042
     Dates: start: 20170201, end: 20170207
  35. TEDUGLUTIDE [Suspect]
     Active Substance: TEDUGLUTIDE
     Dosage: 1.4 MILLIGRAM, 3/WEEK
     Route: 042
     Dates: start: 20170201, end: 20170207
  36. TEDUGLUTIDE [Suspect]
     Active Substance: TEDUGLUTIDE
     Dosage: 1.4 MILLIGRAM, 3/WEEK
     Route: 042
     Dates: start: 20170201, end: 20170207
  37. TEDUGLUTIDE [Suspect]
     Active Substance: TEDUGLUTIDE
     Dosage: 1.4 MILLIGRAM, 4/WEEK
     Route: 042
     Dates: start: 20170208, end: 20170214
  38. TEDUGLUTIDE [Suspect]
     Active Substance: TEDUGLUTIDE
     Dosage: 1.4 MILLIGRAM, 4/WEEK
     Route: 042
     Dates: start: 20170208, end: 20170214
  39. TEDUGLUTIDE [Suspect]
     Active Substance: TEDUGLUTIDE
     Dosage: 1.4 MILLIGRAM, 4/WEEK
     Route: 042
     Dates: start: 20170208, end: 20170214
  40. TEDUGLUTIDE [Suspect]
     Active Substance: TEDUGLUTIDE
     Dosage: 1.4 MILLIGRAM, 4/WEEK
     Route: 042
     Dates: start: 20170208, end: 20170214
  41. TEDUGLUTIDE [Suspect]
     Active Substance: TEDUGLUTIDE
     Dosage: 1.4 MILLIGRAM, 3/WEEK
     Route: 042
     Dates: start: 20170215, end: 20170221
  42. TEDUGLUTIDE [Suspect]
     Active Substance: TEDUGLUTIDE
     Dosage: 1.4 MILLIGRAM, 3/WEEK
     Route: 042
     Dates: start: 20170215, end: 20170221
  43. TEDUGLUTIDE [Suspect]
     Active Substance: TEDUGLUTIDE
     Dosage: 1.4 MILLIGRAM, 3/WEEK
     Route: 042
     Dates: start: 20170215, end: 20170221
  44. TEDUGLUTIDE [Suspect]
     Active Substance: TEDUGLUTIDE
     Dosage: 1.4 MILLIGRAM, 3/WEEK
     Route: 042
     Dates: start: 20170215, end: 20170221
  45. TEDUGLUTIDE [Suspect]
     Active Substance: TEDUGLUTIDE
     Dosage: 1.4 MILLIGRAM, 4/WEEK
     Route: 042
     Dates: start: 20170222, end: 20170228
  46. TEDUGLUTIDE [Suspect]
     Active Substance: TEDUGLUTIDE
     Dosage: 1.4 MILLIGRAM, 4/WEEK
     Route: 042
     Dates: start: 20170222, end: 20170228
  47. TEDUGLUTIDE [Suspect]
     Active Substance: TEDUGLUTIDE
     Dosage: 1.4 MILLIGRAM, 4/WEEK
     Route: 042
     Dates: start: 20170222, end: 20170228
  48. TEDUGLUTIDE [Suspect]
     Active Substance: TEDUGLUTIDE
     Dosage: 1.4 MILLIGRAM, 4/WEEK
     Route: 042
     Dates: start: 20170222, end: 20170228
  49. TEDUGLUTIDE [Suspect]
     Active Substance: TEDUGLUTIDE
     Dosage: 1.4 MILLIGRAM, 3/WEEK
     Route: 042
     Dates: start: 20170301, end: 20170307
  50. TEDUGLUTIDE [Suspect]
     Active Substance: TEDUGLUTIDE
     Dosage: 1.4 MILLIGRAM, 3/WEEK
     Route: 042
     Dates: start: 20170301, end: 20170307
  51. TEDUGLUTIDE [Suspect]
     Active Substance: TEDUGLUTIDE
     Dosage: 1.4 MILLIGRAM, 3/WEEK
     Route: 042
     Dates: start: 20170301, end: 20170307
  52. TEDUGLUTIDE [Suspect]
     Active Substance: TEDUGLUTIDE
     Dosage: 1.4 MILLIGRAM, 3/WEEK
     Route: 042
     Dates: start: 20170301, end: 20170307
  53. TEDUGLUTIDE [Suspect]
     Active Substance: TEDUGLUTIDE
     Dosage: 1.4 MILLIGRAM, 4/WEEK
     Route: 042
     Dates: start: 20170308, end: 20170314
  54. TEDUGLUTIDE [Suspect]
     Active Substance: TEDUGLUTIDE
     Dosage: 1.4 MILLIGRAM, 4/WEEK
     Route: 042
     Dates: start: 20170308, end: 20170314
  55. TEDUGLUTIDE [Suspect]
     Active Substance: TEDUGLUTIDE
     Dosage: 1.4 MILLIGRAM, 4/WEEK
     Route: 042
     Dates: start: 20170308, end: 20170314
  56. TEDUGLUTIDE [Suspect]
     Active Substance: TEDUGLUTIDE
     Dosage: 1.4 MILLIGRAM, 4/WEEK
     Route: 042
     Dates: start: 20170308, end: 20170314
  57. TEDUGLUTIDE [Suspect]
     Active Substance: TEDUGLUTIDE
     Dosage: 1.4 MILLIGRAM, 3/WEEK
     Route: 042
     Dates: start: 20170315, end: 20170321
  58. TEDUGLUTIDE [Suspect]
     Active Substance: TEDUGLUTIDE
     Dosage: 1.4 MILLIGRAM, 3/WEEK
     Route: 042
     Dates: start: 20170315, end: 20170321
  59. TEDUGLUTIDE [Suspect]
     Active Substance: TEDUGLUTIDE
     Dosage: 1.4 MILLIGRAM, 3/WEEK
     Route: 042
     Dates: start: 20170315, end: 20170321
  60. TEDUGLUTIDE [Suspect]
     Active Substance: TEDUGLUTIDE
     Dosage: 1.4 MILLIGRAM, 3/WEEK
     Route: 042
     Dates: start: 20170315, end: 20170321
  61. TEDUGLUTIDE [Suspect]
     Active Substance: TEDUGLUTIDE
     Dosage: 1.4 MILLIGRAM, 4/WEEK
     Route: 042
     Dates: start: 20170322, end: 20170328
  62. TEDUGLUTIDE [Suspect]
     Active Substance: TEDUGLUTIDE
     Dosage: 1.4 MILLIGRAM, 4/WEEK
     Route: 042
     Dates: start: 20170322, end: 20170328
  63. TEDUGLUTIDE [Suspect]
     Active Substance: TEDUGLUTIDE
     Dosage: 1.4 MILLIGRAM, 4/WEEK
     Route: 042
     Dates: start: 20170322, end: 20170328
  64. TEDUGLUTIDE [Suspect]
     Active Substance: TEDUGLUTIDE
     Dosage: 1.4 MILLIGRAM, 4/WEEK
     Route: 042
     Dates: start: 20170322, end: 20170328
  65. TEDUGLUTIDE [Suspect]
     Active Substance: TEDUGLUTIDE
     Dosage: 1.4 MILLIGRAM, 3/WEEK
     Route: 042
     Dates: start: 20170329, end: 20170404
  66. TEDUGLUTIDE [Suspect]
     Active Substance: TEDUGLUTIDE
     Dosage: 1.4 MILLIGRAM, 3/WEEK
     Route: 042
     Dates: start: 20170329, end: 20170404
  67. TEDUGLUTIDE [Suspect]
     Active Substance: TEDUGLUTIDE
     Dosage: 1.4 MILLIGRAM, 3/WEEK
     Route: 042
     Dates: start: 20170329, end: 20170404
  68. TEDUGLUTIDE [Suspect]
     Active Substance: TEDUGLUTIDE
     Dosage: 1.4 MILLIGRAM, 3/WEEK
     Route: 042
     Dates: start: 20170329, end: 20170404
  69. TEDUGLUTIDE [Suspect]
     Active Substance: TEDUGLUTIDE
     Dosage: 1.4 MILLIGRAM, 4/WEEK
     Route: 042
     Dates: start: 20170405, end: 20170411
  70. TEDUGLUTIDE [Suspect]
     Active Substance: TEDUGLUTIDE
     Dosage: 1.4 MILLIGRAM, 4/WEEK
     Route: 042
     Dates: start: 20170405, end: 20170411
  71. TEDUGLUTIDE [Suspect]
     Active Substance: TEDUGLUTIDE
     Dosage: 1.4 MILLIGRAM, 4/WEEK
     Route: 042
     Dates: start: 20170405, end: 20170411
  72. TEDUGLUTIDE [Suspect]
     Active Substance: TEDUGLUTIDE
     Dosage: 1.4 MILLIGRAM, 4/WEEK
     Route: 042
     Dates: start: 20170405, end: 20170411
  73. TEDUGLUTIDE [Suspect]
     Active Substance: TEDUGLUTIDE
     Dosage: 1.4 MILLIGRAM, 3/WEEK
     Route: 042
     Dates: start: 20170412, end: 20170418
  74. TEDUGLUTIDE [Suspect]
     Active Substance: TEDUGLUTIDE
     Dosage: 1.4 MILLIGRAM, 3/WEEK
     Route: 042
     Dates: start: 20170412, end: 20170418
  75. TEDUGLUTIDE [Suspect]
     Active Substance: TEDUGLUTIDE
     Dosage: 1.4 MILLIGRAM, 3/WEEK
     Route: 042
     Dates: start: 20170412, end: 20170418
  76. TEDUGLUTIDE [Suspect]
     Active Substance: TEDUGLUTIDE
     Dosage: 1.4 MILLIGRAM, 3/WEEK
     Route: 042
     Dates: start: 20170412, end: 20170418
  77. TEDUGLUTIDE [Suspect]
     Active Substance: TEDUGLUTIDE
     Dosage: 1.4 MILLIGRAM, 4/WEEK
     Route: 042
     Dates: start: 20170419, end: 20170425
  78. TEDUGLUTIDE [Suspect]
     Active Substance: TEDUGLUTIDE
     Dosage: 1.4 MILLIGRAM, 4/WEEK
     Route: 042
     Dates: start: 20170419, end: 20170425
  79. TEDUGLUTIDE [Suspect]
     Active Substance: TEDUGLUTIDE
     Dosage: 1.4 MILLIGRAM, 4/WEEK
     Route: 042
     Dates: start: 20170419, end: 20170425
  80. TEDUGLUTIDE [Suspect]
     Active Substance: TEDUGLUTIDE
     Dosage: 1.4 MILLIGRAM, 4/WEEK
     Route: 042
     Dates: start: 20170419, end: 20170425
  81. TEDUGLUTIDE [Suspect]
     Active Substance: TEDUGLUTIDE
     Dosage: 1.4 MILLIGRAM, 3/WEEK
     Route: 042
     Dates: start: 20170426, end: 20170502
  82. TEDUGLUTIDE [Suspect]
     Active Substance: TEDUGLUTIDE
     Dosage: 1.4 MILLIGRAM, 3/WEEK
     Route: 042
     Dates: start: 20170426, end: 20170502
  83. TEDUGLUTIDE [Suspect]
     Active Substance: TEDUGLUTIDE
     Dosage: 1.4 MILLIGRAM, 3/WEEK
     Route: 042
     Dates: start: 20170426, end: 20170502
  84. TEDUGLUTIDE [Suspect]
     Active Substance: TEDUGLUTIDE
     Dosage: 1.4 MILLIGRAM, 3/WEEK
     Route: 042
     Dates: start: 20170426, end: 20170502
  85. TEDUGLUTIDE [Suspect]
     Active Substance: TEDUGLUTIDE
     Dosage: 1.4 MILLIGRAM, 4/WEEK
     Route: 042
     Dates: start: 20170503, end: 20170509
  86. TEDUGLUTIDE [Suspect]
     Active Substance: TEDUGLUTIDE
     Dosage: 1.4 MILLIGRAM, 4/WEEK
     Route: 042
     Dates: start: 20170503, end: 20170509
  87. TEDUGLUTIDE [Suspect]
     Active Substance: TEDUGLUTIDE
     Dosage: 1.4 MILLIGRAM, 4/WEEK
     Route: 042
     Dates: start: 20170503, end: 20170509
  88. TEDUGLUTIDE [Suspect]
     Active Substance: TEDUGLUTIDE
     Dosage: 1.4 MILLIGRAM, 4/WEEK
     Route: 042
     Dates: start: 20170503, end: 20170509
  89. TEDUGLUTIDE [Suspect]
     Active Substance: TEDUGLUTIDE
     Dosage: 1.4 MILLIGRAM, 3/WEEK
     Route: 042
     Dates: start: 20170510, end: 20170516
  90. TEDUGLUTIDE [Suspect]
     Active Substance: TEDUGLUTIDE
     Dosage: 1.4 MILLIGRAM, 3/WEEK
     Route: 042
     Dates: start: 20170510, end: 20170516
  91. TEDUGLUTIDE [Suspect]
     Active Substance: TEDUGLUTIDE
     Dosage: 1.4 MILLIGRAM, 3/WEEK
     Route: 042
     Dates: start: 20170510, end: 20170516
  92. TEDUGLUTIDE [Suspect]
     Active Substance: TEDUGLUTIDE
     Dosage: 1.4 MILLIGRAM, 3/WEEK
     Route: 042
     Dates: start: 20170510, end: 20170516
  93. TEDUGLUTIDE [Suspect]
     Active Substance: TEDUGLUTIDE
     Dosage: 1.4 MILLIGRAM, 4/WEEK
     Route: 042
     Dates: start: 20170517, end: 20170523
  94. TEDUGLUTIDE [Suspect]
     Active Substance: TEDUGLUTIDE
     Dosage: 1.4 MILLIGRAM, 4/WEEK
     Route: 042
     Dates: start: 20170517, end: 20170523
  95. TEDUGLUTIDE [Suspect]
     Active Substance: TEDUGLUTIDE
     Dosage: 1.4 MILLIGRAM, 4/WEEK
     Route: 042
     Dates: start: 20170517, end: 20170523
  96. TEDUGLUTIDE [Suspect]
     Active Substance: TEDUGLUTIDE
     Dosage: 1.4 MILLIGRAM, 4/WEEK
     Route: 042
     Dates: start: 20170517, end: 20170523
  97. TEDUGLUTIDE [Suspect]
     Active Substance: TEDUGLUTIDE
     Dosage: 1.4 MILLIGRAM, 3/WEEK
     Route: 042
     Dates: start: 20170524, end: 20170530
  98. TEDUGLUTIDE [Suspect]
     Active Substance: TEDUGLUTIDE
     Dosage: 1.4 MILLIGRAM, 3/WEEK
     Route: 042
     Dates: start: 20170524, end: 20170530
  99. TEDUGLUTIDE [Suspect]
     Active Substance: TEDUGLUTIDE
     Dosage: 1.4 MILLIGRAM, 3/WEEK
     Route: 042
     Dates: start: 20170524, end: 20170530
  100. TEDUGLUTIDE [Suspect]
     Active Substance: TEDUGLUTIDE
     Dosage: 1.4 MILLIGRAM, 3/WEEK
     Route: 042
     Dates: start: 20170524, end: 20170530
  101. TEDUGLUTIDE [Suspect]
     Active Substance: TEDUGLUTIDE
     Dosage: 1.4 MILLIGRAM, 4/WEEK
     Route: 042
     Dates: start: 20170531, end: 20170606
  102. TEDUGLUTIDE [Suspect]
     Active Substance: TEDUGLUTIDE
     Dosage: 1.4 MILLIGRAM, 4/WEEK
     Route: 042
     Dates: start: 20170531, end: 20170606
  103. TEDUGLUTIDE [Suspect]
     Active Substance: TEDUGLUTIDE
     Dosage: 1.4 MILLIGRAM, 4/WEEK
     Route: 042
     Dates: start: 20170531, end: 20170606
  104. TEDUGLUTIDE [Suspect]
     Active Substance: TEDUGLUTIDE
     Dosage: 1.4 MILLIGRAM, 4/WEEK
     Route: 042
     Dates: start: 20170531, end: 20170606
  105. TEDUGLUTIDE [Suspect]
     Active Substance: TEDUGLUTIDE
     Dosage: 1.4 MILLIGRAM, 3/WEEK
     Route: 042
     Dates: start: 20170607, end: 20170613
  106. TEDUGLUTIDE [Suspect]
     Active Substance: TEDUGLUTIDE
     Dosage: 1.4 MILLIGRAM, 3/WEEK
     Route: 042
     Dates: start: 20170607, end: 20170613
  107. TEDUGLUTIDE [Suspect]
     Active Substance: TEDUGLUTIDE
     Dosage: 1.4 MILLIGRAM, 3/WEEK
     Route: 042
     Dates: start: 20170607, end: 20170613
  108. TEDUGLUTIDE [Suspect]
     Active Substance: TEDUGLUTIDE
     Dosage: 1.4 MILLIGRAM, 3/WEEK
     Route: 042
     Dates: start: 20170607, end: 20170613
  109. TEDUGLUTIDE [Suspect]
     Active Substance: TEDUGLUTIDE
     Dosage: 1.4 MILLIGRAM, 4/WEEK
     Route: 042
     Dates: start: 20170614, end: 20170620
  110. TEDUGLUTIDE [Suspect]
     Active Substance: TEDUGLUTIDE
     Dosage: 1.4 MILLIGRAM, 4/WEEK
     Route: 042
     Dates: start: 20170614, end: 20170620
  111. TEDUGLUTIDE [Suspect]
     Active Substance: TEDUGLUTIDE
     Dosage: 1.4 MILLIGRAM, 4/WEEK
     Route: 042
     Dates: start: 20170614, end: 20170620
  112. TEDUGLUTIDE [Suspect]
     Active Substance: TEDUGLUTIDE
     Dosage: 1.4 MILLIGRAM, 4/WEEK
     Route: 042
     Dates: start: 20170614, end: 20170620
  113. TEDUGLUTIDE [Suspect]
     Active Substance: TEDUGLUTIDE
     Dosage: 1.4 MILLIGRAM, 3/WEEK
     Route: 042
     Dates: start: 20170621, end: 20170627
  114. TEDUGLUTIDE [Suspect]
     Active Substance: TEDUGLUTIDE
     Dosage: 1.4 MILLIGRAM, 3/WEEK
     Route: 042
     Dates: start: 20170621, end: 20170627
  115. TEDUGLUTIDE [Suspect]
     Active Substance: TEDUGLUTIDE
     Dosage: 1.4 MILLIGRAM, 3/WEEK
     Route: 042
     Dates: start: 20170621, end: 20170627
  116. TEDUGLUTIDE [Suspect]
     Active Substance: TEDUGLUTIDE
     Dosage: 1.4 MILLIGRAM, 3/WEEK
     Route: 042
     Dates: start: 20170621, end: 20170627
  117. TEDUGLUTIDE [Suspect]
     Active Substance: TEDUGLUTIDE
     Dosage: 1.4 MILLIGRAM, 4/WEEK
     Route: 042
     Dates: start: 20170628, end: 20170704
  118. TEDUGLUTIDE [Suspect]
     Active Substance: TEDUGLUTIDE
     Dosage: 1.4 MILLIGRAM, 4/WEEK
     Route: 042
     Dates: start: 20170628, end: 20170704
  119. TEDUGLUTIDE [Suspect]
     Active Substance: TEDUGLUTIDE
     Dosage: 1.4 MILLIGRAM, 4/WEEK
     Route: 042
     Dates: start: 20170628, end: 20170704
  120. TEDUGLUTIDE [Suspect]
     Active Substance: TEDUGLUTIDE
     Dosage: 1.4 MILLIGRAM, 4/WEEK
     Route: 042
     Dates: start: 20170628, end: 20170704
  121. TEDUGLUTIDE [Suspect]
     Active Substance: TEDUGLUTIDE
     Dosage: 1.4 MILLIGRAM, 3/WEEK
     Route: 042
     Dates: start: 20170705, end: 20170711
  122. TEDUGLUTIDE [Suspect]
     Active Substance: TEDUGLUTIDE
     Dosage: 1.4 MILLIGRAM, 3/WEEK
     Route: 042
     Dates: start: 20170705, end: 20170711
  123. TEDUGLUTIDE [Suspect]
     Active Substance: TEDUGLUTIDE
     Dosage: 1.4 MILLIGRAM, 3/WEEK
     Route: 042
     Dates: start: 20170705, end: 20170711
  124. TEDUGLUTIDE [Suspect]
     Active Substance: TEDUGLUTIDE
     Dosage: 1.4 MILLIGRAM, 3/WEEK
     Route: 042
     Dates: start: 20170705, end: 20170711
  125. TEDUGLUTIDE [Suspect]
     Active Substance: TEDUGLUTIDE
     Dosage: 1.4 MILLIGRAM, 4/WEEK
     Route: 042
     Dates: start: 20170712, end: 20170718
  126. TEDUGLUTIDE [Suspect]
     Active Substance: TEDUGLUTIDE
     Dosage: 1.4 MILLIGRAM, 4/WEEK
     Route: 042
     Dates: start: 20170712, end: 20170718
  127. TEDUGLUTIDE [Suspect]
     Active Substance: TEDUGLUTIDE
     Dosage: 1.4 MILLIGRAM, 4/WEEK
     Route: 042
     Dates: start: 20170712, end: 20170718
  128. TEDUGLUTIDE [Suspect]
     Active Substance: TEDUGLUTIDE
     Dosage: 1.4 MILLIGRAM, 4/WEEK
     Route: 042
     Dates: start: 20170712, end: 20170718
  129. TEDUGLUTIDE [Suspect]
     Active Substance: TEDUGLUTIDE
     Dosage: 1.4 MILLIGRAM, 3/WEEK
     Route: 042
     Dates: start: 20170719, end: 20170725
  130. TEDUGLUTIDE [Suspect]
     Active Substance: TEDUGLUTIDE
     Dosage: 1.4 MILLIGRAM, 3/WEEK
     Route: 042
     Dates: start: 20170719, end: 20170725
  131. TEDUGLUTIDE [Suspect]
     Active Substance: TEDUGLUTIDE
     Dosage: 1.4 MILLIGRAM, 3/WEEK
     Route: 042
     Dates: start: 20170719, end: 20170725
  132. TEDUGLUTIDE [Suspect]
     Active Substance: TEDUGLUTIDE
     Dosage: 1.4 MILLIGRAM, 3/WEEK
     Route: 042
     Dates: start: 20170719, end: 20170725
  133. TEDUGLUTIDE [Suspect]
     Active Substance: TEDUGLUTIDE
     Dosage: 1.4 MILLIGRAM, 4/WEEK
     Route: 042
     Dates: start: 20170726, end: 20170801
  134. TEDUGLUTIDE [Suspect]
     Active Substance: TEDUGLUTIDE
     Dosage: 1.4 MILLIGRAM, 4/WEEK
     Route: 042
     Dates: start: 20170726, end: 20170801
  135. TEDUGLUTIDE [Suspect]
     Active Substance: TEDUGLUTIDE
     Dosage: 1.4 MILLIGRAM, 4/WEEK
     Route: 042
     Dates: start: 20170726, end: 20170801
  136. TEDUGLUTIDE [Suspect]
     Active Substance: TEDUGLUTIDE
     Dosage: 1.4 MILLIGRAM, 4/WEEK
     Route: 042
     Dates: start: 20170726, end: 20170801
  137. TEDUGLUTIDE [Suspect]
     Active Substance: TEDUGLUTIDE
     Dosage: 1.4 MILLIGRAM, 3/WEEK
     Route: 042
     Dates: start: 20170802, end: 20170808
  138. TEDUGLUTIDE [Suspect]
     Active Substance: TEDUGLUTIDE
     Dosage: 1.4 MILLIGRAM, 3/WEEK
     Route: 042
     Dates: start: 20170802, end: 20170808
  139. TEDUGLUTIDE [Suspect]
     Active Substance: TEDUGLUTIDE
     Dosage: 1.4 MILLIGRAM, 3/WEEK
     Route: 042
     Dates: start: 20170802, end: 20170808
  140. TEDUGLUTIDE [Suspect]
     Active Substance: TEDUGLUTIDE
     Dosage: 1.4 MILLIGRAM, 3/WEEK
     Route: 042
     Dates: start: 20170802, end: 20170808
  141. TEDUGLUTIDE [Suspect]
     Active Substance: TEDUGLUTIDE
     Dosage: 1.4 MILLIGRAM, 4/WEEK
     Route: 042
     Dates: start: 20170809, end: 20170815
  142. TEDUGLUTIDE [Suspect]
     Active Substance: TEDUGLUTIDE
     Dosage: 1.4 MILLIGRAM, 4/WEEK
     Route: 042
     Dates: start: 20170809, end: 20170815
  143. TEDUGLUTIDE [Suspect]
     Active Substance: TEDUGLUTIDE
     Dosage: 1.4 MILLIGRAM, 4/WEEK
     Route: 042
     Dates: start: 20170809, end: 20170815
  144. TEDUGLUTIDE [Suspect]
     Active Substance: TEDUGLUTIDE
     Dosage: 1.4 MILLIGRAM, 4/WEEK
     Route: 042
     Dates: start: 20170809, end: 20170815
  145. TEDUGLUTIDE [Suspect]
     Active Substance: TEDUGLUTIDE
     Dosage: 1.4 MILLIGRAM, 3/WEEK
     Route: 042
     Dates: start: 20170816, end: 20170822
  146. TEDUGLUTIDE [Suspect]
     Active Substance: TEDUGLUTIDE
     Dosage: 1.4 MILLIGRAM, 3/WEEK
     Route: 042
     Dates: start: 20170816, end: 20170822
  147. TEDUGLUTIDE [Suspect]
     Active Substance: TEDUGLUTIDE
     Dosage: 1.4 MILLIGRAM, 3/WEEK
     Route: 042
     Dates: start: 20170816, end: 20170822
  148. TEDUGLUTIDE [Suspect]
     Active Substance: TEDUGLUTIDE
     Dosage: 1.4 MILLIGRAM, 3/WEEK
     Route: 042
     Dates: start: 20170816, end: 20170822
  149. TEDUGLUTIDE [Suspect]
     Active Substance: TEDUGLUTIDE
     Dosage: 1.4 MILLIGRAM, 4/WEEK
     Route: 042
     Dates: start: 20170823, end: 20170829
  150. TEDUGLUTIDE [Suspect]
     Active Substance: TEDUGLUTIDE
     Dosage: 1.4 MILLIGRAM, 4/WEEK
     Route: 042
     Dates: start: 20170823, end: 20170829
  151. TEDUGLUTIDE [Suspect]
     Active Substance: TEDUGLUTIDE
     Dosage: 1.4 MILLIGRAM, 4/WEEK
     Route: 042
     Dates: start: 20170823, end: 20170829
  152. TEDUGLUTIDE [Suspect]
     Active Substance: TEDUGLUTIDE
     Dosage: 1.4 MILLIGRAM, 4/WEEK
     Route: 042
     Dates: start: 20170823, end: 20170829
  153. TEDUGLUTIDE [Suspect]
     Active Substance: TEDUGLUTIDE
     Dosage: 1.4 MILLIGRAM, 3/WEEK
     Route: 042
     Dates: start: 20170830, end: 20170905
  154. TEDUGLUTIDE [Suspect]
     Active Substance: TEDUGLUTIDE
     Dosage: 1.4 MILLIGRAM, 3/WEEK
     Route: 042
     Dates: start: 20170830, end: 20170905
  155. TEDUGLUTIDE [Suspect]
     Active Substance: TEDUGLUTIDE
     Dosage: 1.4 MILLIGRAM, 3/WEEK
     Route: 042
     Dates: start: 20170830, end: 20170905
  156. TEDUGLUTIDE [Suspect]
     Active Substance: TEDUGLUTIDE
     Dosage: 1.4 MILLIGRAM, 3/WEEK
     Route: 042
     Dates: start: 20170830, end: 20170905
  157. TEDUGLUTIDE [Suspect]
     Active Substance: TEDUGLUTIDE
     Dosage: 1.4 MILLIGRAM, 4/WEEK
     Route: 042
     Dates: start: 20170906, end: 20170912
  158. TEDUGLUTIDE [Suspect]
     Active Substance: TEDUGLUTIDE
     Dosage: 1.4 MILLIGRAM, 4/WEEK
     Route: 042
     Dates: start: 20170906, end: 20170912
  159. TEDUGLUTIDE [Suspect]
     Active Substance: TEDUGLUTIDE
     Dosage: 1.4 MILLIGRAM, 4/WEEK
     Route: 042
     Dates: start: 20170906, end: 20170912
  160. TEDUGLUTIDE [Suspect]
     Active Substance: TEDUGLUTIDE
     Dosage: 1.4 MILLIGRAM, 4/WEEK
     Route: 042
     Dates: start: 20170906, end: 20170912
  161. TEDUGLUTIDE [Suspect]
     Active Substance: TEDUGLUTIDE
     Dosage: 1.4 MILLIGRAM, 3/WEEK
     Route: 042
     Dates: start: 20170913, end: 20170919
  162. TEDUGLUTIDE [Suspect]
     Active Substance: TEDUGLUTIDE
     Dosage: 1.4 MILLIGRAM, 3/WEEK
     Route: 042
     Dates: start: 20170913, end: 20170919
  163. TEDUGLUTIDE [Suspect]
     Active Substance: TEDUGLUTIDE
     Dosage: 1.4 MILLIGRAM, 3/WEEK
     Route: 042
     Dates: start: 20170913, end: 20170919
  164. TEDUGLUTIDE [Suspect]
     Active Substance: TEDUGLUTIDE
     Dosage: 1.4 MILLIGRAM, 3/WEEK
     Route: 042
     Dates: start: 20170913, end: 20170919
  165. TEDUGLUTIDE [Suspect]
     Active Substance: TEDUGLUTIDE
     Dosage: 1.4 MILLIGRAM, 4/WEEK
     Route: 042
     Dates: start: 20170920, end: 20170926
  166. TEDUGLUTIDE [Suspect]
     Active Substance: TEDUGLUTIDE
     Dosage: 1.4 MILLIGRAM, 4/WEEK
     Route: 042
     Dates: start: 20170920, end: 20170926
  167. TEDUGLUTIDE [Suspect]
     Active Substance: TEDUGLUTIDE
     Dosage: 1.4 MILLIGRAM, 4/WEEK
     Route: 042
     Dates: start: 20170920, end: 20170926
  168. TEDUGLUTIDE [Suspect]
     Active Substance: TEDUGLUTIDE
     Dosage: 1.4 MILLIGRAM, 4/WEEK
     Route: 042
     Dates: start: 20170920, end: 20170926
  169. TEDUGLUTIDE [Suspect]
     Active Substance: TEDUGLUTIDE
     Dosage: 1.4 MILLIGRAM, 3/WEEK
     Route: 042
     Dates: start: 20170927, end: 20171003
  170. TEDUGLUTIDE [Suspect]
     Active Substance: TEDUGLUTIDE
     Dosage: 1.4 MILLIGRAM, 3/WEEK
     Route: 042
     Dates: start: 20170927, end: 20171003
  171. TEDUGLUTIDE [Suspect]
     Active Substance: TEDUGLUTIDE
     Dosage: 1.4 MILLIGRAM, 3/WEEK
     Route: 042
     Dates: start: 20170927, end: 20171003
  172. TEDUGLUTIDE [Suspect]
     Active Substance: TEDUGLUTIDE
     Dosage: 1.4 MILLIGRAM, 3/WEEK
     Route: 042
     Dates: start: 20170927, end: 20171003
  173. TEDUGLUTIDE [Suspect]
     Active Substance: TEDUGLUTIDE
     Dosage: 1.4 MILLIGRAM, 4/WEEK
     Route: 042
     Dates: start: 20171004, end: 20171010
  174. TEDUGLUTIDE [Suspect]
     Active Substance: TEDUGLUTIDE
     Dosage: 1.4 MILLIGRAM, 4/WEEK
     Route: 042
     Dates: start: 20171004, end: 20171010
  175. TEDUGLUTIDE [Suspect]
     Active Substance: TEDUGLUTIDE
     Dosage: 1.4 MILLIGRAM, 4/WEEK
     Route: 042
     Dates: start: 20171004, end: 20171010
  176. TEDUGLUTIDE [Suspect]
     Active Substance: TEDUGLUTIDE
     Dosage: 1.4 MILLIGRAM, 4/WEEK
     Route: 042
     Dates: start: 20171004, end: 20171010
  177. TEDUGLUTIDE [Suspect]
     Active Substance: TEDUGLUTIDE
     Dosage: 1.4 MILLIGRAM, 3/WEEK
     Route: 042
     Dates: start: 20171011, end: 20171017
  178. TEDUGLUTIDE [Suspect]
     Active Substance: TEDUGLUTIDE
     Dosage: 1.4 MILLIGRAM, 3/WEEK
     Route: 042
     Dates: start: 20171011, end: 20171017
  179. TEDUGLUTIDE [Suspect]
     Active Substance: TEDUGLUTIDE
     Dosage: 1.4 MILLIGRAM, 3/WEEK
     Route: 042
     Dates: start: 20171011, end: 20171017
  180. TEDUGLUTIDE [Suspect]
     Active Substance: TEDUGLUTIDE
     Dosage: 1.4 MILLIGRAM, 3/WEEK
     Route: 042
     Dates: start: 20171011, end: 20171017
  181. TEDUGLUTIDE [Suspect]
     Active Substance: TEDUGLUTIDE
     Dosage: 1.4 MILLIGRAM, 4/WEEK
     Route: 042
     Dates: start: 20171018, end: 20171024
  182. TEDUGLUTIDE [Suspect]
     Active Substance: TEDUGLUTIDE
     Dosage: 1.4 MILLIGRAM, 4/WEEK
     Route: 042
     Dates: start: 20171018, end: 20171024
  183. TEDUGLUTIDE [Suspect]
     Active Substance: TEDUGLUTIDE
     Dosage: 1.4 MILLIGRAM, 4/WEEK
     Route: 042
     Dates: start: 20171018, end: 20171024
  184. TEDUGLUTIDE [Suspect]
     Active Substance: TEDUGLUTIDE
     Dosage: 1.4 MILLIGRAM, 4/WEEK
     Route: 042
     Dates: start: 20171018, end: 20171024
  185. TEDUGLUTIDE [Suspect]
     Active Substance: TEDUGLUTIDE
     Dosage: 1.4 MILLIGRAM, 3/WEEK
     Route: 042
     Dates: start: 20171025, end: 20171031
  186. TEDUGLUTIDE [Suspect]
     Active Substance: TEDUGLUTIDE
     Dosage: 1.4 MILLIGRAM, 3/WEEK
     Route: 042
     Dates: start: 20171025, end: 20171031
  187. TEDUGLUTIDE [Suspect]
     Active Substance: TEDUGLUTIDE
     Dosage: 1.4 MILLIGRAM, 3/WEEK
     Route: 042
     Dates: start: 20171025, end: 20171031
  188. TEDUGLUTIDE [Suspect]
     Active Substance: TEDUGLUTIDE
     Dosage: 1.4 MILLIGRAM, 3/WEEK
     Route: 042
     Dates: start: 20171025, end: 20171031
  189. NADROPARIN CALCIUM [Concomitant]
     Active Substance: NADROPARIN CALCIUM
     Indication: Anticoagulant therapy
  190. CHOLESTYRAMINE [Concomitant]
     Active Substance: CHOLESTYRAMINE
     Indication: Bile acid malabsorption
     Dosage: 4.00 GRAM, QD
     Route: 048
     Dates: start: 201808
  191. CHOLESTYRAMINE [Concomitant]
     Active Substance: CHOLESTYRAMINE
     Indication: Bile acid malabsorption
  192. CHOLECALCIFEROL [Concomitant]
     Active Substance: CHOLECALCIFEROL
     Indication: Vitamin supplementation
  193. CALCIVIT D3 [Concomitant]
     Indication: Mineral supplementation
  194. CALCIVIT D3 [Concomitant]
     Indication: Vitamin supplementation
  195. PANTOPRAZOLE [Concomitant]
     Active Substance: PANTOPRAZOLE
     Indication: Antacid therapy
  196. BUDESONIDE [Concomitant]
     Active Substance: BUDESONIDE
     Indication: Crohn^s disease
  197. BISOPROLOL [Concomitant]
     Active Substance: BISOPROLOL
     Indication: Hypertension
  198. ASPIRIN [Concomitant]
     Active Substance: ASPIRIN
     Indication: Cardiovascular event prophylaxis
  199. BUDESONIDE [Concomitant]
     Active Substance: BUDESONIDE
     Indication: Crohn^s disease
     Dosage: 9.00 MILLIGRAM, QD
     Route: 048
     Dates: start: 201806
  200. APIXABAN [Concomitant]
     Active Substance: APIXABAN
     Indication: Anticoagulant therapy
     Dosage: 2.50 MILLIGRAM, QD
     Route: 048
     Dates: start: 2018, end: 201806
  201. APIXABAN [Concomitant]
     Active Substance: APIXABAN
     Dosage: 5.00 MILLIGRAM, BID
     Route: 048
     Dates: start: 201803, end: 2018

REACTIONS (1)
  - Squamous cell carcinoma of head and neck [Recovered/Resolved]

NARRATIVE: CASE EVENT DATE: 20170117
